FAERS Safety Report 20635179 (Version 1)
Quarter: 2022Q1

REPORT INFORMATION
  Report Type: Report from Study
  Country: BR (occurrence: BR)
  Receive Date: 20220325
  Receipt Date: 20220325
  Transmission Date: 20220423
  Serious: Yes (Hospitalization, Other)
  Sender: FDA-Public Use
  Company Number: BR-JNJFOC-20220329824

PATIENT
  Age: 20 Year
  Sex: Male
  Weight: 58 kg

DRUGS (2)
  1. REMICADE [Suspect]
     Active Substance: INFLIXIMAB
     Indication: Colitis
     Dosage: 0 WEEK - 5MG/KG, 2 WEEK- 10 MG/KG
     Route: 042
     Dates: start: 20220123
  2. REMICADE [Suspect]
     Active Substance: INFLIXIMAB
     Route: 042

REACTIONS (5)
  - Thrombosis [Recovering/Resolving]
  - Colectomy total [Unknown]
  - Colitis ulcerative [Recovered/Resolved with Sequelae]
  - Polymerase chain reaction [Recovered/Resolved]
  - Anaemia [Recovering/Resolving]

NARRATIVE: CASE EVENT DATE: 20220101
